FAERS Safety Report 4273209-8 (Version None)
Quarter: 2004Q1

REPORT INFORMATION
  Report Type: 
  Country: None (occurrence: None)
  Receive Date: 20040116
  Receipt Date: 20031219
  Transmission Date: 20041129
  Serious: Yes (Life-Threatening, Other)
  Sender: FDA-Public Use
  Company Number: PHFR2003GB04912

PATIENT
  Age: 41 Year
  Sex: Female

DRUGS (7)
  1. CLOZARIL [Suspect]
     Indication: SCHIZOPHRENIA
     Dosage: 800MG/DAY
     Route: 048
     Dates: start: 19980528, end: 20031219
  2. LITHIUM CARBONATE [Concomitant]
     Dosage: 400 MG/DAY
     Route: 048
  3. LACTULOSE [Concomitant]
     Dosage: 20 MG, BID
     Route: 048
     Dates: end: 20040102
  4. NORIDAY [Concomitant]
     Indication: CONTRACEPTION
     Dosage: 2 TAB/DAY
     Route: 048
  5. BISACODYL [Concomitant]
     Dosage: 20 MG/DAY
     Dates: end: 20040102
  6. DIPROBASE [Concomitant]
     Indication: CONSTIPATION
     Dosage: UNK, BID
     Route: 061
     Dates: end: 20040102
  7. BETNEVATE [Concomitant]
     Indication: ECZEMA
     Dosage: UNK, TID
     Route: 061

REACTIONS (1)
  - CELLULITIS [None]
